FAERS Safety Report 5014546-9 (Version None)
Quarter: 2006Q2

REPORT INFORMATION
  Report Type: 
  Country: None (occurrence: None)
  Receive Date: 20060525
  Receipt Date: 20060512
  Transmission Date: 20061013
  Serious: Yes (Other)
  Sender: FDA-Public Use
  Company Number: 2005081800

PATIENT
  Age: 63 Year
  Sex: Male
  Weight: 68.0396 kg

DRUGS (5)
  1. BEXTRA [Suspect]
     Indication: ILL-DEFINED DISORDER
  2. VIOXX [Suspect]
     Indication: ILL-DEFINED DISORDER
  3. ECOTRIN (ACETYLSALICYLIC ACID) [Concomitant]
  4. LOSARTAN POTASSIUM [Concomitant]
  5. ZOCOR [Concomitant]

REACTIONS (5)
  - CEREBRAL INFARCTION [None]
  - CEREBROVASCULAR ACCIDENT [None]
  - HYPERCHOLESTEROLAEMIA [None]
  - VENOUS ANGIOMA OF BRAIN [None]
  - VERTEBRAL ARTERY STENOSIS [None]
